FAERS Safety Report 9690875 (Version 1)
Quarter: 2013Q4

REPORT INFORMATION
  Report Type: Report from Study
  Country: LB (occurrence: LB)
  Receive Date: 20131115
  Receipt Date: 20131115
  Transmission Date: 20140711
  Serious: Yes (Death)
  Sender: FDA-Public Use
  Company Number: LB-SA-2013SA114882

PATIENT
  Age: 82 Year
  Sex: Female

DRUGS (9)
  1. LANTUS SOLOSTAR [Suspect]
     Indication: DIABETES MELLITUS
     Route: 065
  2. SOLOSTAR [Concomitant]
     Indication: DEVICE THERAPY
  3. AMARYL [Concomitant]
     Indication: DIABETES MELLITUS
     Route: 048
  4. SIOFOR [Concomitant]
     Indication: DIABETES MELLITUS
     Route: 048
  5. OSSOPAN [Concomitant]
     Route: 048
  6. NOOTROPIL [Concomitant]
     Route: 048
  7. CORDARONE [Concomitant]
     Route: 048
  8. XANAX [Concomitant]
     Route: 048
  9. FOSAMAX [Concomitant]
     Route: 048

REACTIONS (2)
  - Hepatic cancer [Fatal]
  - General physical health deterioration [Fatal]
